FAERS Safety Report 24432840 (Version 2)
Quarter: 2024Q4

REPORT INFORMATION
  Report Type: Spontaneous
  Country: US (occurrence: US)
  Receive Date: 20241014
  Receipt Date: 20241024
  Transmission Date: 20250115
  Serious: Yes (Life-Threatening, Hospitalization)
  Sender: TEVA
  Company Number: US-TEVA-VS-3253010

PATIENT
  Age: 86 Year
  Sex: Male

DRUGS (1)
  1. DEXAMETHASONE [Suspect]
     Active Substance: DEXAMETHASONE
     Indication: Haemophagocytic lymphohistiocytosis
     Dosage: HIGH DOSE
     Route: 042

REACTIONS (1)
  - Drug ineffective [Unknown]
